FAERS Safety Report 8073032-2 (Version None)
Quarter: 2012Q1

REPORT INFORMATION
  Report Type: 
  Country: None (occurrence: None)
  Receive Date: 20120126
  Receipt Date: 20120116
  Transmission Date: 20120608
  Serious: Yes (Hospitalization)
  Sender: FDA-Public Use
  Company Number: FR-BRISTOL-MYERS SQUIBB COMPANY-16354292

PATIENT
  Age: 6 Month
  Sex: Male
  Weight: 5 kg

DRUGS (1)
  1. COUMADIN [Suspect]
     Indication: HEART DISEASE CONGENITAL
     Dosage: 18MAR11;2 MG BID,07OCT11 MISTAKENLY 2 TABLETS I.E 5MG TABS,4MG ON EVEN DAYS AND 5MG ON ODD DAYS
     Route: 048
     Dates: start: 20111007

REACTIONS (4)
  - INTERNATIONAL NORMALISED RATIO INCREASED [None]
  - INCORRECT DRUG DOSAGE FORM ADMINISTERED [None]
  - MEDICATION ERROR [None]
  - OVERDOSE [None]
